FAERS Safety Report 14433808 (Version 6)
Quarter: 2020Q1

REPORT INFORMATION
  Report Type: Report from Study
  Country: US (occurrence: US)
  Receive Date: 20180124
  Receipt Date: 20200127
  Transmission Date: 20200409
  Serious: Yes (Death, Hospitalization)
  Sender: FDA-Public Use
  Company Number: US-ACTELION-A-NJ2018-166173

PATIENT
  Age: 1 Year
  Sex: Female

DRUGS (17)
  1. TRACLEER [Suspect]
     Active Substance: BOSENTAN
     Indication: PULMONARY ARTERIAL HYPERTENSION
     Dosage: 62.5 MG, QD
     Route: 048
     Dates: start: 20171121
  2. TRACLEER [Suspect]
     Active Substance: BOSENTAN
     Dosage: 16 MG, BID
     Route: 048
  3. REMODULIN [Concomitant]
     Active Substance: TREPROSTINIL
     Dosage: 1 MG/ML, UNK
     Dates: start: 20180115
  4. DIAZEPAM. [Concomitant]
     Active Substance: DIAZEPAM
     Dosage: 1 MG/ML, UNK
     Dates: start: 20180412
  5. CARAFATE [Concomitant]
     Active Substance: SUCRALFATE
     Dosage: 1 GM/10 ML
     Dates: start: 20180412
  6. DIURIL [Concomitant]
     Active Substance: CHLOROTHIAZIDE
     Dosage: 250/5 ML, UNK
     Dates: start: 20180412
  7. TRACLEER [Suspect]
     Active Substance: BOSENTAN
     Dosage: 32 MG, BID
     Route: 048
     Dates: end: 20191225
  8. ZYRTEC [Concomitant]
     Active Substance: CETIRIZINE HYDROCHLORIDE
     Dosage: 5MG/5ML
     Dates: start: 20180412
  9. SILDENAFIL. [Concomitant]
     Active Substance: SILDENAFIL
     Dosage: 20 MG, UNK
     Dates: start: 20180115
  10. POTASSIUM [Concomitant]
     Active Substance: POTASSIUM
     Dosage: UNK
     Dates: start: 20180412
  11. BETHANECHOL CHLORIDE. [Concomitant]
     Active Substance: BETHANECHOL CHLORIDE
     Dosage: UNK
     Dates: start: 20180412
  12. DIGOXIN. [Concomitant]
     Active Substance: DIGOXIN
     Dosage: 50 MCG/ML, UNK
     Dates: start: 20180412
  13. LOVENOX [Concomitant]
     Active Substance: ENOXAPARIN SODIUM
     Dosage: 30/0.3 ML, UNK
     Dates: start: 20180412
  14. POTASSIUM SULFATE [Concomitant]
     Active Substance: POTASSIUM SULFATE
  15. RANITIDINE. [Concomitant]
     Active Substance: RANITIDINE
     Dosage: 15 MG/ML, UNK
     Dates: start: 20180412
  16. MORPHINE [Concomitant]
     Active Substance: MORPHINE
     Dosage: 100/5 ML, UNK
     Dates: start: 20180412
  17. BUMETANIDE. [Concomitant]
     Active Substance: BUMETANIDE
     Dosage: 1 MG, UNK
     Dates: start: 20180412

REACTIONS (7)
  - Death [Fatal]
  - Gastroenteritis viral [Recovered/Resolved]
  - Patent ductus arteriosus repair [Recovered/Resolved]
  - Respiratory distress [Recovered/Resolved]
  - Viral infection [Unknown]
  - Pulmonary arterial hypertension [Unknown]
  - Emergency care [Recovered/Resolved]

NARRATIVE: CASE EVENT DATE: 20171226
